FAERS Safety Report 6154221-0 (Version None)
Quarter: 2009Q2

REPORT INFORMATION
  Report Type: 
  Country: None (occurrence: None)
  Receive Date: 20090414
  Receipt Date: 20090408
  Transmission Date: 20091009
  Serious: Yes (Other)
  Sender: FDA-Public Use
  Company Number: US-AVENTIS-200912090US

PATIENT
  Sex: Female
  Weight: 100 kg

DRUGS (9)
  1. TAXOTERE [Suspect]
     Indication: BREAST CANCER FEMALE
     Route: 042
     Dates: start: 20090126, end: 20090126
  2. CYTOXAN [Suspect]
     Indication: BREAST CANCER FEMALE
     Route: 042
     Dates: start: 20090126, end: 20090126
  3. NIFEDIPINE [Concomitant]
  4. HYDROCHLOROTHIAZIDE [Concomitant]
  5. ORAL ANTIDIABETICS [Concomitant]
  6. LEVOTHYROXINE SODIUM [Concomitant]
  7. PAXIL [Concomitant]
  8. NEULASTA [Concomitant]
  9. ARANESP [Concomitant]

REACTIONS (2)
  - MUSCLE NECROSIS [None]
  - MYOSITIS [None]
